FAERS Safety Report 19453490 (Version 1)
Quarter: 2021Q2

REPORT INFORMATION
  Report Type: Spontaneous
  Country: GB (occurrence: GB)
  Receive Date: 20210623
  Receipt Date: 20210623
  Transmission Date: 20210717
  Serious: Yes (Death, Other)
  Sender: FDA-Public Use
  Company Number: NVSC2021GB139094

PATIENT
  Age: 25 Year
  Sex: Male
  Weight: 93 kg

DRUGS (4)
  1. PENICILLIN G SODIQUE [Suspect]
     Active Substance: PENICILLIN G SODIUM
     Indication: ILL-DEFINED DISORDER
     Route: 065
     Dates: start: 20210608
  2. XENIDATE XL [Concomitant]
     Active Substance: METHYLPHENIDATE HYDROCHLORIDE
     Indication: ILL-DEFINED DISORDER
     Dosage: 1 DF (1 TABLET)
     Route: 065
     Dates: start: 20200918, end: 20210524
  3. PARACETAMOL [Concomitant]
     Active Substance: ACETAMINOPHEN
     Indication: ILL-DEFINED DISORDER
     Dosage: UNK (1?2 TABLET)
     Route: 065
     Dates: start: 20210413, end: 20210413
  4. METHYL SALICYLATE [Concomitant]
     Active Substance: METHYL SALICYLATE
     Indication: ILL-DEFINED DISORDER
     Dosage: PRN
     Route: 065
     Dates: start: 20210225, end: 20210525

REACTIONS (1)
  - Adverse drug reaction [Fatal]

NARRATIVE: CASE EVENT DATE: 20210608
